FAERS Safety Report 23367946 (Version 3)
Quarter: 2024Q1

REPORT INFORMATION
  Report Type: Report from Study
  Country: US (occurrence: US)
  Receive Date: 20240105
  Receipt Date: 20240327
  Transmission Date: 20240409
  Serious: Yes (Death)
  Sender: FDA-Public Use
  Company Number: US-ABBVIE-5569687

PATIENT
  Age: 69 Year
  Sex: Male

DRUGS (2)
  1. DUOPA [Suspect]
     Active Substance: CARBIDOPA\LEVODOPA
     Indication: Parkinson^s disease
     Dosage: FREQUENCY: ADMINISTER CONTENTS OF 1 CASSETTE VIA PEG-J FOR UP TO 16 HOURS EACH DAY. MORNING DOSE:...
     Route: 050
     Dates: start: 20231026
  2. DUOPA [Suspect]
     Active Substance: CARBIDOPA\LEVODOPA
     Dosage: MORNING DOSE: 15 ML, CONTINUOUS DOSE: 3.2 ML/HR, EXTRA DOSE: 1 ML FREQUENCY TEXT: 1 CASSETTE UP T...
     Route: 050
     Dates: start: 20231025, end: 20231025

REACTIONS (4)
  - Death [Fatal]
  - Fall [Unknown]
  - Head injury [Unknown]
  - Periorbital injury [Unknown]

NARRATIVE: CASE EVENT DATE: 20231229
